FAERS Safety Report 5161863-8 (Version None)
Quarter: 2006Q4

REPORT INFORMATION
  Report Type: 
  Country: None (occurrence: None)
  Receive Date: 20061130
  Receipt Date: 20061010
  Transmission Date: 20070319
  Serious: No
  Sender: FDA-Public Use
  Company Number: US-GLAXOSMITHKLINE-A0623087A

PATIENT
  Age: 35 Year
  Sex: Female

DRUGS (1)
  1. WELLBUTRIN XL [Suspect]
     Indication: ANXIETY
     Dosage: 300MG PER DAY
     Route: 048
     Dates: end: 20061008

REACTIONS (6)
  - ANOREXIA [None]
  - DIZZINESS [None]
  - HEAD DISCOMFORT [None]
  - HYPERTENSION [None]
  - TINNITUS [None]
  - WEIGHT DECREASED [None]
